FAERS Safety Report 8481924-5 (Version None)
Quarter: 2012Q3

REPORT INFORMATION
  Report Type: 
  Country: None (occurrence: None)
  Receive Date: 20120702
  Receipt Date: 20120618
  Transmission Date: 20120928
  Serious: Yes (Hospitalization)
  Sender: FDA-Public Use
  Company Number: IE-MEDIMMUNE-MEDI-0014594

PATIENT
  Age: 3 Month
  Sex: Male
  Weight: 5.2 kg

DRUGS (5)
  1. SYNAGIS [Suspect]
     Indication: PREMATURE BABY
     Route: 030
     Dates: start: 20111001, end: 20120301
  2. GAVISCON [Concomitant]
  3. KAPSOVIT [Concomitant]
  4. FERROUS SULFATE TAB [Concomitant]
  5. SYNAGIS [Suspect]
     Indication: RESPIRATORY SYNCYTIAL VIRUS INFECTION
     Route: 030
     Dates: start: 20111001, end: 20120301

REACTIONS (7)
  - ASPIRATION [None]
  - REGURGITATION [None]
  - CHOKING [None]
  - ERYTHEMA [None]
  - COUGH [None]
  - GASTROOESOPHAGEAL REFLUX DISEASE [None]
  - APNOEA [None]
